FAERS Safety Report 5899489-0 (Version None)
Quarter: 2008Q3

REPORT INFORMATION
  Report Type: 
  Country: None (occurrence: None)
  Receive Date: 20080926
  Receipt Date: 20080917
  Transmission Date: 20090109
  Serious: Yes (Hospitalization, Other)
  Sender: FDA-Public Use
  Company Number: US-JNJFOC-20080904710

PATIENT

DRUGS (1)
  1. RISPERIDONE [Suspect]
     Indication: SCHIZOPHRENIA
     Route: 065

REACTIONS (7)
  - EXTRAPYRAMIDAL DISORDER [None]
  - LOSS OF LIBIDO [None]
  - MENSTRUAL DISORDER [None]
  - SCHIZOPHRENIA [None]
  - SEXUAL DYSFUNCTION [None]
  - SUICIDE ATTEMPT [None]
  - WEIGHT INCREASED [None]
